FAERS Safety Report 15715313 (Version 1)
Quarter: 2018Q4

REPORT INFORMATION
  Report Type: Report from Study
  Country: US (occurrence: US)
  Receive Date: 20181212
  Receipt Date: 20181212
  Transmission Date: 20190205
  Serious: Yes (Death)
  Sender: FDA-Public Use
  Company Number: US-CELGENEUS-USA-20181202895

PATIENT
  Age: 74 Year
  Sex: Male
  Weight: 80.36 kg

DRUGS (5)
  1. NEUPOGEN [Concomitant]
     Active Substance: FILGRASTIM
     Indication: WHITE BLOOD CELL COUNT DECREASED
     Route: 065
  2. TAXOL [Concomitant]
     Active Substance: PACLITAXEL
     Indication: NEOPLASM MALIGNANT
     Dosage: 198 MILLIGRAM
     Route: 065
  3. ADRUCIL [Suspect]
     Active Substance: FLUOROURACIL
     Indication: TONGUE NEOPLASM MALIGNANT STAGE UNSPECIFIED
     Dosage: 1200 MILLIGRAM
     Route: 041
     Dates: start: 20181118, end: 20181123
  4. ABRAXANE [Suspect]
     Active Substance: PACLITAXEL
     Indication: TONGUE NEOPLASM MALIGNANT STAGE UNSPECIFIED
     Route: 065
  5. HYDREA [Suspect]
     Active Substance: HYDROXYUREA
     Indication: TONGUE NEOPLASM MALIGNANT STAGE UNSPECIFIED
     Dosage: 500 MILLIGRAM
     Route: 065
     Dates: start: 20181118, end: 20181123

REACTIONS (1)
  - Septic shock [Fatal]

NARRATIVE: CASE EVENT DATE: 20181130
